FAERS Safety Report 14035611 (Version 3)
Quarter: 2017Q4

REPORT INFORMATION
  Report Type: Report from Study
  Country: US (occurrence: US)
  Receive Date: 20171003
  Receipt Date: 20171220
  Transmission Date: 20180321
  Serious: Yes (Death, Hospitalization, Other)
  Sender: FDA-Public Use
  Company Number: US-ACTELION-A-US2017-160167

PATIENT
  Age: 57 Year
  Sex: Female

DRUGS (2)
  1. TRACLEER [Suspect]
     Active Substance: BOSENTAN
     Indication: PULMONARY ARTERIAL HYPERTENSION
     Dosage: 125 MG, BID
     Route: 048
     Dates: start: 20141124
  2. FLOLAN [Suspect]
     Active Substance: EPOPROSTENOL SODIUM
     Indication: PRODUCT USED FOR UNKNOWN INDICATION
     Route: 065

REACTIONS (16)
  - Fluid overload [Unknown]
  - Swan ganz catheter placement [Unknown]
  - Dyspnoea [Unknown]
  - Anaemia [Unknown]
  - Fatigue [Unknown]
  - Sepsis [Unknown]
  - Haematocrit decreased [Unknown]
  - Drug withdrawal syndrome [Unknown]
  - Dialysis [Unknown]
  - End stage renal disease [Unknown]
  - Haemoglobin decreased [Unknown]
  - Hypotension [Recovering/Resolving]
  - Packed red blood cell transfusion [Unknown]
  - Respiratory failure [Fatal]
  - Ventricular failure [Unknown]
  - Transfusion [Unknown]

NARRATIVE: CASE EVENT DATE: 20170915
